FAERS Safety Report 17130639 (Version 1)
Quarter: 2019Q4

REPORT INFORMATION
  Report Type: Spontaneous
  Country: US (occurrence: US)
  Receive Date: 20191209
  Receipt Date: 20191209
  Transmission Date: 20200122
  Serious: Yes (Hospitalization)
  Sender: FDA-Public Use
  Company Number: US-ENDO PHARMACEUTICALS INC-2019-110608

PATIENT
  Age: 74 Year
  Sex: Male
  Weight: 106.5 kg

DRUGS (4)
  1. RAPAMUNE [Concomitant]
     Active Substance: SIROLIMUS
     Indication: PROPHYLAXIS AGAINST TRANSPLANT REJECTION
     Dosage: 1 MG, THREE TABLETS SUNDAY, TUESDAY, THURSDAY,SATURDY, TWO ON MONDAY, FRIDAY
     Route: 048
     Dates: start: 20140919
  2. HYDRALAZINE HYDROCHLORIDE. [Suspect]
     Active Substance: HYDRALAZINE HYDROCHLORIDE
     Indication: PRODUCT USED FOR UNKNOWN INDICATION
     Dosage: 50 MG, TID
     Route: 048
     Dates: start: 201911, end: 201911
  3. PROGRAFT [Concomitant]
     Active Substance: TACROLIMUS
     Indication: PROPHYLAXIS AGAINST TRANSPLANT REJECTION
     Dosage: UNK UNKNOWN, UNKNOWN
     Route: 065
  4. HYDRALAZINE HYDROCHLORIDE. [Suspect]
     Active Substance: HYDRALAZINE HYDROCHLORIDE
     Dosage: 25 MG, BID (DO NOT TAKE AT LUNCH TIME)
     Route: 048
     Dates: start: 201911

REACTIONS (3)
  - Dizziness [Unknown]
  - Hyperkalaemia [Recovering/Resolving]
  - Blood creatinine increased [Recovering/Resolving]

NARRATIVE: CASE EVENT DATE: 201911
